FAERS Safety Report 6641992-X (Version None)
Quarter: 2010Q1

REPORT INFORMATION
  Report Type: 
  Country: None (occurrence: None)
  Receive Date: 20100319
  Receipt Date: 20100317
  Transmission Date: 20100710
  Serious: Yes (Other)
  Sender: FDA-Public Use
  Company Number: US-BAYER-200917702BCC

PATIENT
  Age: 93 Year
  Sex: Female
  Weight: 77 kg

DRUGS (5)
  1. ALEVE (CAPLET) [Suspect]
     Indication: MUSCULOSKELETAL PAIN
     Dosage: TOTAL DAILY DOSE: 220 MG  UNIT DOSE: 220 MG
     Route: 048
     Dates: start: 20090901
  2. ALEVE (CAPLET) [Suspect]
     Dosage: TOTAL DAILY DOSE: 440 MG  UNIT DOSE: 220 MG
     Route: 048
     Dates: end: 20091201
  3. AVAPRO [Concomitant]
     Route: 065
  4. LIPITOR [Concomitant]
     Route: 065
  5. EYE DROPS [Concomitant]
     Route: 065

REACTIONS (2)
  - MUSCULOSKELETAL PAIN [None]
  - ULCER HAEMORRHAGE [None]
